FAERS Safety Report 5460010-2 (Version None)
Quarter: 2007Q3

REPORT INFORMATION
  Report Type: 
  Country: None (occurrence: None)
  Receive Date: 20070919
  Receipt Date: 20070605
  Transmission Date: 20080115
  Serious: Yes (Other)
  Sender: FDA-Public Use
  Company Number: US-ASTRAZENECA-2007UW09590

PATIENT
  Age: 638 Month
  Sex: Female

DRUGS (3)
  1. SEROQUEL [Suspect]
     Indication: BIPOLAR DISORDER
     Dosage: 15 TO 200 MG
     Route: 048
     Dates: start: 20010401
  2. SEROQUEL [Suspect]
     Indication: DEPRESSION
     Dosage: 15 TO 200 MG
     Route: 048
     Dates: start: 20010401
  3. SEROQUEL [Suspect]
     Indication: SCHIZOPHRENIA
     Dosage: 15 TO 200 MG
     Route: 048
     Dates: start: 20010401

REACTIONS (1)
  - PANCREATITIS ACUTE [None]
